FAERS Safety Report 21922499 (Version 2)
Quarter: 2023Q1

REPORT INFORMATION
  Report Type: Spontaneous
  Country: BR (occurrence: BR)
  Receive Date: 20230128
  Receipt Date: 20230130
  Transmission Date: 20230418
  Serious: Yes (Other)
  Sender: FDA-Public Use
  Company Number: BR-STERISCIENCE B.V.-2023-ST-000315

PATIENT
  Sex: Female

DRUGS (11)
  1. PIPERACILLIN SODIUM\TAZOBACTAM SODIUM [Suspect]
     Active Substance: PIPERACILLIN SODIUM\TAZOBACTAM SODIUM
     Indication: Product used for unknown indication
     Dosage: UNKNOWN
     Route: 064
     Dates: start: 2020
  2. DOBUTAMINE [Suspect]
     Active Substance: DOBUTAMINE HYDROCHLORIDE
     Indication: Product used for unknown indication
     Dosage: UNKNOWN
     Route: 064
     Dates: start: 2020
  3. NOREPINEPHRINE [Suspect]
     Active Substance: NOREPINEPHRINE
     Indication: Product used for unknown indication
     Dosage: UNKNOWN
     Route: 064
     Dates: start: 2020
  4. AMIODARONE [Suspect]
     Active Substance: AMIODARONE
     Indication: Product used for unknown indication
     Dosage: UNKNOWN
     Route: 064
     Dates: start: 2020
  5. HEPARIN [Suspect]
     Active Substance: HEPARIN SODIUM
     Indication: Product used for unknown indication
     Dosage: UNKNOWN
     Route: 064
     Dates: start: 2020
  6. MORPHINE [Suspect]
     Active Substance: MORPHINE
     Indication: Product used for unknown indication
     Dosage: UNKNOWN
     Route: 064
     Dates: start: 2020
  7. WARFARIN [Suspect]
     Active Substance: WARFARIN
     Indication: Product used for unknown indication
     Dosage: UNKNOWN
     Route: 064
     Dates: start: 2020
  8. FUROSEMIDE [Suspect]
     Active Substance: FUROSEMIDE
     Indication: Product used for unknown indication
     Dosage: PATIENT MOTHER DOSE WAS 40 MILLIGRAM/DAY
     Route: 064
     Dates: start: 2020
  9. FUROSEMIDE [Suspect]
     Active Substance: FUROSEMIDE
     Dosage: PATIENT MOTHER RECEIVED LOW DOSE
     Route: 064
  10. CARVEDILOL [Suspect]
     Active Substance: CARVEDILOL
     Indication: Product used for unknown indication
     Dosage: PATIENT MOTHER DOSE WAS 25 MILLIGRAM/DAY
     Route: 064
     Dates: start: 2020
  11. CARVEDILOL [Suspect]
     Active Substance: CARVEDILOL
     Dosage: PATIENT MOTHER DOSE WAS 75 MILLIGRAM/DAY
     Route: 064

REACTIONS (3)
  - Premature baby [Unknown]
  - Low birth weight baby [Unknown]
  - Foetal exposure during pregnancy [Unknown]

NARRATIVE: CASE EVENT DATE: 20200101
